FAERS Safety Report 18223288 (Version 1)
Quarter: 2020Q3

REPORT INFORMATION
  Report Type: Spontaneous
  Country: US (occurrence: US)
  Receive Date: 20200902
  Receipt Date: 20200902
  Transmission Date: 20201103
  Serious: No
  Sender: FDA-Public Use
  Company Number: US-ALVOGEN-2020-ALVOGEN-102452

PATIENT
  Age: 66 Year
  Sex: Female
  Weight: 45.36 kg

DRUGS (1)
  1. CLINDAMYCIN. [Suspect]
     Active Substance: CLINDAMYCIN
     Indication: FOLLICULITIS
     Dosage: 1X/DAY (1% APPLYING TO GROIN AREA NIGHTLY FOR 14 DAYS)
     Dates: start: 20191113, end: 20191126

REACTIONS (10)
  - Burning sensation [Not Recovered/Not Resolved]
  - Product use in unapproved indication [Unknown]
  - Insomnia [Unknown]
  - Vulvovaginal burning sensation [Unknown]
  - Nasal congestion [Unknown]
  - Condition aggravated [Unknown]
  - Skin disorder [Unknown]
  - Diarrhoea [Recovered/Resolved with Sequelae]
  - Off label use [Unknown]
  - Dyspnoea [Not Recovered/Not Resolved]
